FAERS Safety Report 4289004-X (Version None)
Quarter: 2004Q1

REPORT INFORMATION
  Report Type: 
  Country: None (occurrence: None)
  Receive Date: 20040206
  Receipt Date: 20040203
  Transmission Date: 20041129
  Serious: Yes (Hospitalization)
  Sender: FDA-Public Use
  Company Number: 2004UW01834

PATIENT
  Age: 75 Year
  Sex: Female

DRUGS (1)
  1. IRESSA [Suspect]

REACTIONS (2)
  - CELLULITIS [None]
  - PULMONARY OEDEMA [None]
